FAERS Safety Report 8460886-0 (Version None)
Quarter: 2012Q2

REPORT INFORMATION
  Report Type: 
  Country: None (occurrence: None)
  Receive Date: 20120625
  Receipt Date: 20120613
  Transmission Date: 20120825
  Serious: Yes (Hospitalization)
  Sender: FDA-Public Use
  Company Number: SE-AMGEN-SWECT2012033898

PATIENT
  Age: 71 Year
  Sex: Female

DRUGS (4)
  1. METHOTREXATE [Concomitant]
     Dosage: UNK
     Dates: start: 20060130
  2. ETANERCEPT [Suspect]
     Dosage: 50 MG, WEEKLY
     Dates: start: 20060720, end: 20090316
  3. PREDNISOLONE [Concomitant]
     Dosage: UNK
     Dates: start: 20100306
  4. ETANERCEPT [Suspect]
     Indication: RHEUMATOID ARTHRITIS
     Dosage: 50 MG, WEEKLY
     Dates: start: 20090909

REACTIONS (3)
  - MALIGNANT RESPIRATORY TRACT NEOPLASM [None]
  - LUNG ADENOCARCINOMA METASTATIC [None]
  - METASTASES TO ADRENALS [None]
